FAERS Safety Report 11781467 (Version 1)
Quarter: 2015Q4

REPORT INFORMATION
  Report Type: Spontaneous
  Country: US (occurrence: US)
  Receive Date: 20151126
  Receipt Date: 20151126
  Transmission Date: 20160305
  Serious: Yes (Other)
  Sender: FDA-Public Use
  Company Number: US-JNJFOC-20151119433

PATIENT
  Age: 4 Year
  Sex: Female

DRUGS (3)
  1. DOXORUBICIN HYDROCHLORIDE. [Suspect]
     Active Substance: DOXORUBICIN HYDROCHLORIDE
     Indication: NEPHROBLASTOMA
     Route: 065
  2. VINCRISTINE [Suspect]
     Active Substance: VINCRISTINE
     Indication: NEPHROBLASTOMA
     Route: 065
  3. ACTINOMYCINES [Suspect]
     Active Substance: UNSPECIFIED INGREDIENT
     Indication: NEPHROBLASTOMA
     Route: 065

REACTIONS (3)
  - Histiocytosis haematophagic [Recovered/Resolved]
  - Off label use [Unknown]
  - Product use issue [Unknown]
